FAERS Safety Report 12252180 (Version 2)
Quarter: 2016Q2

REPORT INFORMATION
  Report Type: Report from Study
  Country: US (occurrence: US)
  Receive Date: 20160411
  Receipt Date: 20160419
  Transmission Date: 20160815
  Serious: Yes (Other)
  Sender: FDA-Public Use
  Company Number: US-ROCHE-1739756

PATIENT

DRUGS (1)
  1. BEVACIZUMAB [Suspect]
     Active Substance: BEVACIZUMAB
     Indication: GLIOBLASTOMA
     Route: 065

REACTIONS (7)
  - Stomatitis [Unknown]
  - Lyme disease [Unknown]
  - Platelet count decreased [Unknown]
  - Hyperkalaemia [Unknown]
  - White blood cell count decreased [Unknown]
  - Anaemia [Unknown]
  - Neutrophil count decreased [Unknown]
